FAERS Safety Report 14249750 (Version 1)
Quarter: 2017Q4

REPORT INFORMATION
  Report Type: Spontaneous
  Country: US (occurrence: US)
  Receive Date: 20171205
  Receipt Date: 20171205
  Transmission Date: 20180321
  Serious: Yes (Death)
  Sender: FDA-Public Use
  Company Number: US-CIPLA LTD.-2017US21766

PATIENT

DRUGS (9)
  1. TRIAMTERENE. [Suspect]
     Active Substance: TRIAMTERENE
     Dosage: UNK
     Route: 048
  2. HYDROCHLOROTHIAZIDE. [Suspect]
     Active Substance: HYDROCHLOROTHIAZIDE
     Dosage: UNK
     Route: 048
  3. MEVACOR [Suspect]
     Active Substance: LOVASTATIN
     Dosage: UNK
     Route: 048
  4. VERAPAMIL [Suspect]
     Active Substance: VERAPAMIL HYDROCHLORIDE
     Dosage: UNK
     Route: 048
  5. OLANZAPINE. [Suspect]
     Active Substance: OLANZAPINE
     Dosage: UNK
     Route: 048
  6. METFORMIN [Suspect]
     Active Substance: METFORMIN HYDROCHLORIDE
     Dosage: UNK
     Route: 048
  7. LITHIUM. [Suspect]
     Active Substance: LITHIUM
     Dosage: UNK
     Route: 048
  8. GLIPIZIDE. [Suspect]
     Active Substance: GLIPIZIDE
     Dosage: UNK
     Route: 048
  9. HYDROGEN PEROXIDE. [Suspect]
     Active Substance: HYDROGEN PEROXIDE
     Dosage: UNK
     Route: 048

REACTIONS (2)
  - Toxicity to various agents [Fatal]
  - Completed suicide [Fatal]
